FAERS Safety Report 8792240 (Version 2)
Quarter: 2012Q4

REPORT INFORMATION
  Report Type: 
  Country: US (occurrence: US)
  Receive Date: 20120918
  Receipt Date: 20121108
  Transmission Date: 20130627
  Serious: No
  Sender: FDA-Public Use
  Company Number: US-PFIZER INC-2012227354

PATIENT

DRUGS (2)
  1. EFFEXOR [Suspect]
     Dosage: 75 daily
     Dates: start: 2012
  2. EFFEXOR XR [Suspect]
     Dosage: UNK
     Dates: start: 2012

REACTIONS (1)
  - Epistaxis [Unknown]
